FAERS Safety Report 7077609 (Version 2)
Quarter: 2014Q3

REPORT INFORMATION
  Report Type: Spontaneous
  Country: US (occurrence: None)
  Receive Date: 20090803
  Receipt Date: 20140822
  Transmission Date: 20150326
  Serious: Yes (Other)
  Sender: FDA-Public Use
  Company Number: 2009S1005737

PATIENT
  Age: 51 Year
  Sex: Male

DRUGS (3)
  1. SIMVASTATIN. [Concomitant]
     Active Substance: SIMVASTATIN
  2. TRICOR [Concomitant]
     Active Substance: FENOFIBRATE
  3. PHOSPHO-SODA [Suspect]
     Active Substance: SODIUM PHOSPHATE, DIBASIC\SODIUM PHOSPHATE, MONOBASIC
     Indication: COLONOSCOPY
     Dosage: 1 IN 2 D
     Route: 048
     Dates: start: 20081113, end: 20081114

REACTIONS (5)
  - Renal failure chronic [None]
  - Weight increased [None]
  - Haemoglobin decreased [None]
  - Dehydration [None]
  - Cardiac stress test abnormal [None]

NARRATIVE: CASE EVENT DATE: 200812
